FAERS Safety Report 5682210-9 (Version None)
Quarter: 2008Q1

REPORT INFORMATION
  Report Type: 
  Country: None (occurrence: None)
  Receive Date: 20080327
  Receipt Date: 20080327
  Transmission Date: 20080703
  Serious: Yes (Hospitalization)
  Sender: FDA-Public Use
  Company Number: None

PATIENT
  Age: 72 Year
  Weight: 104 kg

DRUGS (1)
  1. HEPARIN [Suspect]
     Indication: THERAPEUTIC PROCEDURE
     Dosage: 70 UNITS/KG BOLUS FOR INTERVEN; IV
     Route: 042
     Dates: start: 20080305, end: 20080326

REACTIONS (2)
  - HYPOTENSION [None]
  - PHARMACEUTICAL PRODUCT COMPLAINT [None]
